FAERS Safety Report 17997710 (Version 1)
Quarter: 2020Q3

REPORT INFORMATION
  Report Type: Spontaneous
  Country: US (occurrence: US)
  Receive Date: 20200709
  Receipt Date: 20200709
  Transmission Date: 20201103
  Serious: No
  Sender: FDA-Public Use
  Company Number: US-GW PHARMA-202007USGW02383

PATIENT

DRUGS (1)
  1. EPIDIOLEX [Suspect]
     Active Substance: CANNABIDIOL
     Indication: EPILEPSY
     Dosage: UNK
     Route: 048

REACTIONS (6)
  - Somnolence [Unknown]
  - Balance disorder [Unknown]
  - Tongue biting [Unknown]
  - Dyskinesia [Unknown]
  - Cough [Unknown]
  - Drooling [Unknown]
